FAERS Safety Report 25534721 (Version 2)
Quarter: 2025Q3

REPORT INFORMATION
  Report Type: Spontaneous
  Country: US (occurrence: US)
  Receive Date: 20250709
  Receipt Date: 20250912
  Transmission Date: 20251020
  Serious: No
  Sender: MERZ
  Company Number: US-MRZWEB-2025070000015

PATIENT

DRUGS (1)
  1. XEOMIN [Suspect]
     Active Substance: INCOBOTULINUMTOXINA
     Indication: Skin cosmetic procedure
     Route: 058
     Dates: start: 20250616, end: 20250616

REACTIONS (2)
  - Injection site rash [Recovered/Resolved]
  - Incorrect route of product administration [Unknown]

NARRATIVE: CASE EVENT DATE: 20250616
